FAERS Safety Report 16786781 (Version 1)
Quarter: 2019Q3

REPORT INFORMATION
  Report Type: Report from Study
  Country: KR (occurrence: KR)
  Receive Date: 20190909
  Receipt Date: 20190909
  Transmission Date: 20191005
  Serious: Yes (Hospitalization)
  Sender: FDA-Public Use
  Company Number: KR-COLLEGIUM PHARMACEUTICAL, INC.-KR-2019COL001045

PATIENT
  Age: 74 Year
  Sex: Male

DRUGS (5)
  1. ABSTRAL [Concomitant]
     Active Substance: FENTANYL CITRATE
     Indication: LUNG NEOPLASM MALIGNANT
     Dosage: UNK
     Dates: start: 20190723
  2. PEBRON [Concomitant]
     Indication: PROPHYLAXIS
     Dosage: UNK
  3. NUCYNTA ER [Suspect]
     Active Substance: TAPENTADOL HYDROCHLORIDE
     Indication: PAIN
     Dosage: 50 MG, BID
     Route: 048
     Dates: start: 20190723
  4. ARONAMIN C PLUS [Concomitant]
     Indication: PROPHYLAXIS
     Dosage: UNK
     Dates: start: 20190723
  5. MEGACE F [Concomitant]
     Indication: PROPHYLAXIS
     Dosage: UNK
     Dates: start: 20190710

REACTIONS (1)
  - Pneumonitis [Recovered/Resolved]

NARRATIVE: CASE EVENT DATE: 20190731
